FAERS Safety Report 9816693 (Version 2)
Quarter: 2014Q2

REPORT INFORMATION
  Report Type: Spontaneous
  Country: US (occurrence: US)
  Receive Date: 20140114
  Receipt Date: 20140523
  Transmission Date: 20141212
  Serious: Yes (Hospitalization, Other)
  Sender: FDA-Public Use
  Company Number: US-TEVA-455965USA

PATIENT
  Age: 31 Year
  Sex: Female
  Weight: 59.02 kg

DRUGS (1)
  1. PARAGARD 380A [Suspect]
     Indication: CONTRACEPTION
     Route: 015
     Dates: start: 2011, end: 20140107

REACTIONS (6)
  - Suicidal ideation [Recovered/Resolved]
  - Anaemia [Recovered/Resolved]
  - Erythema [Recovering/Resolving]
  - Rash pustular [Recovering/Resolving]
  - Stress [Not Recovered/Not Resolved]
  - Acne cystic [Recovering/Resolving]
